FAERS Safety Report 13965748 (Version 2)
Quarter: 2019Q1

REPORT INFORMATION
  Report Type: Report from Study
  Country: US (occurrence: US)
  Receive Date: 20170913
  Receipt Date: 20190221
  Transmission Date: 20190417
  Serious: Yes (Hospitalization)
  Sender: FDA-Public Use
  Company Number: US-ACTELION-A-US2014-109637

PATIENT
  Age: 72 Year
  Sex: Female
  Weight: 90.25 kg

DRUGS (3)
  1. TRACLEER [Suspect]
     Active Substance: BOSENTAN
     Indication: PULMONARY ARTERIAL HYPERTENSION
     Dosage: 125 MG, BID
     Route: 048
  2. REMODULIN [Concomitant]
     Active Substance: TREPROSTINIL
  3. NIFEDIPINE. [Concomitant]
     Active Substance: NIFEDIPINE

REACTIONS (8)
  - Pneumonia [Unknown]
  - Cough [Unknown]
  - Pulmonary congestion [Unknown]
  - Hospitalisation [Unknown]
  - Bronchitis [Unknown]
  - Dyspnoea [Unknown]
  - Palpitations [Unknown]
  - Nasopharyngitis [Unknown]
